FAERS Safety Report 17159371 (Version 3)
Quarter: 2021Q1

REPORT INFORMATION
  Report Type: Report from Study
  Country: CA (occurrence: CA)
  Receive Date: 20191216
  Receipt Date: 20210119
  Transmission Date: 20210419
  Serious: Yes (Other)
  Sender: FDA-Public Use
  Company Number: CA-GLAXOSMITHKLINE-CA2019GSK097258

PATIENT
  Sex: Female
  Weight: 65 kg

DRUGS (9)
  1. SALBUTAMOL SULPHATE [Suspect]
     Active Substance: ALBUTEROL SULFATE
     Indication: PRODUCT USED FOR UNKNOWN INDICATION
     Dosage: UNK UNK, PRN
     Route: 055
     Dates: start: 2016, end: 201906
  2. AVAMYS [Suspect]
     Active Substance: FLUTICASONE FUROATE
     Indication: PRODUCT USED FOR UNKNOWN INDICATION
     Dosage: 2 PUFF(S), BID, 200/25MCG
  3. NUCALA [Suspect]
     Active Substance: MEPOLIZUMAB
     Indication: ASTHMA
     Dosage: 100 MG, Z(MONTHLY)
     Route: 042
     Dates: start: 20190621
  4. SALBUTAMOL SULPHATE [Suspect]
     Active Substance: ALBUTEROL SULFATE
     Dosage: UNK UNK, QD
  5. BREO ELLIPTA [Suspect]
     Active Substance: FLUTICASONE FUROATE\VILANTEROL TRIFENATATE
     Indication: PRODUCT USED FOR UNKNOWN INDICATION
     Dosage: 1 PUFF(S), QD, 200 MCG
  6. SPIRIVA RESPIMAT [Suspect]
     Active Substance: TIOTROPIUM BROMIDE
     Indication: PRODUCT USED FOR UNKNOWN INDICATION
     Dosage: 2 PUFF(S), QD
     Route: 055
     Dates: start: 2018, end: 201906
  7. PREDNISONE. [Suspect]
     Active Substance: PREDNISONE
     Indication: PRODUCT USED FOR UNKNOWN INDICATION
     Dosage: 5 MG, QD
  8. SINGULAIR [Suspect]
     Active Substance: MONTELUKAST SODIUM
     Indication: PRODUCT USED FOR UNKNOWN INDICATION
     Dosage: 10 MG, QD
     Route: 048
  9. PULMICORT RESPULES [Suspect]
     Active Substance: BUDESONIDE
     Indication: PRODUCT USED FOR UNKNOWN INDICATION
     Dosage: UNK UNK, QD

REACTIONS (27)
  - Chest discomfort [Unknown]
  - Sputum discoloured [Unknown]
  - Throat clearing [Unknown]
  - Mobility decreased [Unknown]
  - Thyroid disorder [Not Recovered/Not Resolved]
  - Nasal congestion [Unknown]
  - Dizziness [Unknown]
  - Throat irritation [Unknown]
  - Therapeutic product effect incomplete [Unknown]
  - Dyspnoea [Unknown]
  - Dust allergy [Unknown]
  - Seasonal allergy [Unknown]
  - Blood count abnormal [Unknown]
  - Sleep disorder [Unknown]
  - Wheezing [Unknown]
  - Sleep disorder due to a general medical condition [Recovered/Resolved]
  - Ear pruritus [Unknown]
  - Pulmonary mass [Unknown]
  - Asthma [Recovered/Resolved]
  - Loss of personal independence in daily activities [Unknown]
  - Productive cough [Unknown]
  - Frustration tolerance decreased [Unknown]
  - Chest pain [Unknown]
  - Pruritus [Unknown]
  - Haemoptysis [Recovered/Resolved]
  - Sleep apnoea syndrome [Unknown]
  - Condition aggravated [Unknown]
